FAERS Safety Report 7035673-0 (Version None)
Quarter: 2010Q4

REPORT INFORMATION
  Report Type: 
  Country: None (occurrence: None)
  Receive Date: 20101008
  Receipt Date: 20101004
  Transmission Date: 20110411
  Serious: Yes (Other)
  Sender: FDA-Public Use
  Company Number: GB-MERCK-1010GBR00017

PATIENT
  Age: 34 Year
  Sex: Female

DRUGS (3)
  1. ZOCOR [Suspect]
     Route: 048
  2. MULTAQ [Suspect]
     Route: 065
  3. AMIODARONE [Concomitant]
     Route: 065

REACTIONS (3)
  - CHEST PAIN [None]
  - MYOSITIS [None]
  - PAIN IN EXTREMITY [None]
